FAERS Safety Report 5085623-1 (Version None)
Quarter: 2006Q3

REPORT INFORMATION
  Report Type: 
  Country: None (occurrence: None)
  Receive Date: 20060731
  Receipt Date: 20051228
  Transmission Date: 20061208
  Serious: Yes (Other)
  Sender: FDA-Public Use
  Company Number: 200512763BWH

PATIENT
  Age: 39 Year
  Sex: Female
  Weight: 68.0396 kg

DRUGS (2)
  1. AVELOX [Suspect]
     Indication: CELLULITIS
     Dosage: 400 MG, QD, ORAL
     Route: 048
  2. TOPICAL GENTAMICIN OPHTHALMIC DROPS [Concomitant]

REACTIONS (1)
  - TACHYCARDIA [None]
